FAERS Safety Report 15603886 (Version 2)
Quarter: 2018Q4

REPORT INFORMATION
  Report Type: Spontaneous
  Country: US (occurrence: US)
  Receive Date: 20181109
  Receipt Date: 20181217
  Transmission Date: 20190205
  Serious: Yes (Other)
  Sender: FDA-Public Use
  Company Number: US-BAUSCH-BL-2018-029787

PATIENT
  Sex: Female

DRUGS (2)
  1. ZYLET [Suspect]
     Active Substance: LOTEPREDNOL ETABONATE\TOBRAMYCIN
     Dosage: USED AGAIN
     Route: 047
     Dates: start: 2018
  2. ZYLET [Suspect]
     Active Substance: LOTEPREDNOL ETABONATE\TOBRAMYCIN
     Indication: HORDEOLUM
     Dosage: LONG TIME AGE. USED FOR TWO WEEKS
     Route: 047

REACTIONS (5)
  - Dacryocanaliculitis [Recovered/Resolved]
  - Eye infection [Recovered/Resolved]
  - Product quality issue [Recovered/Resolved]
  - Product container issue [Recovered/Resolved]
  - Swelling of eyelid [Recovered/Resolved]

NARRATIVE: CASE EVENT DATE: 2018
